FAERS Safety Report 12001124 (Version 1)
Quarter: 2016Q1

REPORT INFORMATION
  Report Type: Report from Study
  Country: JP (occurrence: JP)
  Receive Date: 20160204
  Receipt Date: 20160204
  Transmission Date: 20160526
  Serious: Yes (Death)
  Sender: FDA-Public Use
  Company Number: JP-SA-2016SA019613

PATIENT
  Age: 73 Year
  Sex: Male

DRUGS (4)
  1. TAXOTERE [Suspect]
     Active Substance: DOCETAXEL
     Indication: HORMONE-REFRACTORY PROSTATE CANCER
     Route: 042
     Dates: start: 20101222, end: 20101222
  2. DECADRON [Concomitant]
     Active Substance: DEXAMETHASONE
     Indication: NEOPLASM
     Dates: start: 200810
  3. PROSEXOL [Concomitant]
     Active Substance: ETHINYL ESTRADIOL
     Indication: NEOPLASM
     Dates: start: 200610
  4. LEUPLIN [Concomitant]
     Active Substance: LEUPROLIDE ACETATE
     Indication: NEOPLASM
     Dates: start: 200303

REACTIONS (2)
  - Infection [Fatal]
  - Febrile neutropenia [Fatal]

NARRATIVE: CASE EVENT DATE: 201012
